FAERS Safety Report 24078311 (Version 2)
Quarter: 2025Q3

REPORT INFORMATION
  Report Type: Spontaneous
  Country: US (occurrence: US)
  Receive Date: 20240711
  Receipt Date: 20250717
  Transmission Date: 20251021
  Serious: No
  Sender: AMNEAL
  Company Number: US-AMNEAL PHARMACEUTICALS-2024-AMRX-01300

PATIENT
  Sex: Male
  Weight: 45.805 kg

DRUGS (3)
  1. RISPERIDONE [Suspect]
     Active Substance: RISPERIDONE
     Indication: Autism spectrum disorder
     Dosage: 0.25 ML TWICE A DAY
     Route: 048
     Dates: start: 20240307
  2. RISPERIDONE [Suspect]
     Active Substance: RISPERIDONE
     Route: 065
     Dates: start: 202401
  3. RISPERIDONE [Suspect]
     Active Substance: RISPERIDONE
     Dosage: 0.25 MILLIGRAM, 2 /DAY
     Route: 048

REACTIONS (3)
  - Abnormal weight gain [Not Recovered/Not Resolved]
  - Incorrect dose administered [Unknown]
  - Device delivery system issue [Unknown]
